FAERS Safety Report 8175415-9 (Version None)
Quarter: 2012Q1

REPORT INFORMATION
  Report Type: 
  Country: None (occurrence: None)
  Receive Date: 20120229
  Receipt Date: 20120223
  Transmission Date: 20120608
  Serious: Yes (Other)
  Sender: FDA-Public Use
  Company Number: AU-ABBOTT-12P-008-0904402-00

PATIENT
  Sex: Female

DRUGS (2)
  1. HUMIRA [Suspect]
     Indication: RHEUMATOID ARTHRITIS
     Dates: start: 20110801, end: 20120131
  2. CELEBREX [Concomitant]
     Indication: PRODUCT USED FOR UNKNOWN INDICATION

REACTIONS (8)
  - SYSTEMIC LUPUS ERYTHEMATOSUS [None]
  - PYREXIA [None]
  - SINUSITIS [None]
  - PLEURISY [None]
  - PERICARDIAL EFFUSION [None]
  - NAUSEA [None]
  - VOMITING [None]
  - DOUBLE STRANDED DNA ANTIBODY [None]
